FAERS Safety Report 9708602 (Version 1)
Quarter: 2013Q4

REPORT INFORMATION
  Report Type: Spontaneous
  Country: DE (occurrence: DE)
  Receive Date: 20131125
  Receipt Date: 20131125
  Transmission Date: 20140711
  Serious: Yes (Other)
  Sender: FDA-Public Use
  Company Number: DE-PFIZER INC-2013335015

PATIENT
  Age: 67 Year
  Sex: Female

DRUGS (2)
  1. LYRICA [Suspect]
     Dosage: 100 MG, 2X/DAY
  2. MORPHINE [Concomitant]
     Indication: PAIN

REACTIONS (4)
  - Diabetes mellitus [Unknown]
  - Memory impairment [Unknown]
  - Gait disturbance [Unknown]
  - Dry mouth [Unknown]
